FAERS Safety Report 21401328 (Version 1)
Quarter: 2022Q4

REPORT INFORMATION
  Report Type: Report from Study
  Country: MX (occurrence: MX)
  Receive Date: 20221003
  Receipt Date: 20221003
  Transmission Date: 20230113
  Serious: Yes (Death, Other)
  Sender: FDA-Public Use
  Company Number: MX-NOVARTISPH-NVSC2022MX222247

PATIENT
  Age: 77 Year
  Sex: Male

DRUGS (1)
  1. EXELON [Suspect]
     Active Substance: RIVASTIGMINE TARTRATE
     Indication: Product used for unknown indication
     Dosage: 13.3 MG QD(PATCH 15 (CM2), 27 MG RIVASTIGMINE BASE)
     Route: 062

REACTIONS (2)
  - Pneumonia [Fatal]
  - Weight decreased [Unknown]
